FAERS Safety Report 5096648-4 (Version None)
Quarter: 2006Q3

REPORT INFORMATION
  Report Type: 
  Country: None (occurrence: None)
  Receive Date: 20060830
  Receipt Date: 20060822
  Transmission Date: 20061208
  Serious: Yes (Hospitalization, Other)
  Sender: FDA-Public Use
  Company Number: HQWYE105820DEC05

PATIENT
  Age: 63 Year
  Sex: Male

DRUGS (5)
  1. CYCLOSPORINE [Suspect]
     Indication: PROPHYLAXIS AGAINST TRANSPLANT REJECTION
     Dosage: 200 MG 1X PER 1 DAY
     Route: 048
     Dates: start: 20051119
  2. CORTICOSTEROID NOS (CORTICOSTEROID NOS, ) [Suspect]
  3. AMLODIPINE [Concomitant]
  4. SULFAMETHIZOLE TAB [Concomitant]
  5. TRIMETHOPRIM [Concomitant]

REACTIONS (1)
  - LYMPHOCELE [None]
